FAERS Safety Report 24389171 (Version 2)
Quarter: 2024Q4

REPORT INFORMATION
  Report Type: Report from Study
  Country: US (occurrence: US)
  Receive Date: 20241002
  Receipt Date: 20241104
  Transmission Date: 20250114
  Serious: Yes (Other)
  Sender: ABBVIE
  Company Number: US-ABBVIE-5833365

PATIENT
  Age: 51 Year
  Sex: Female

DRUGS (2)
  1. RINVOQ [Suspect]
     Active Substance: UPADACITINIB
     Indication: Crohn^s disease
     Route: 048
     Dates: start: 20240702
  2. MOUNJARO [Concomitant]
     Active Substance: TIRZEPATIDE
     Indication: Crohn^s disease

REACTIONS (12)
  - Crohn^s disease [Recovering/Resolving]
  - Arthritis [Unknown]
  - Cardiac disorder [Recovering/Resolving]
  - Burning sensation [Recovering/Resolving]
  - Heart rate increased [Unknown]
  - Adverse drug reaction [Unknown]
  - Peripheral swelling [Unknown]
  - Arthralgia [Unknown]
  - COVID-19 [Recovered/Resolved]
  - Pulmonary fibrosis [Recovered/Resolved]
  - Chest pain [Unknown]
  - Small intestine ulcer [Unknown]

NARRATIVE: CASE EVENT DATE: 20240101
